FAERS Safety Report 7326939-5 (Version None)
Quarter: 2011Q1

REPORT INFORMATION
  Report Type: 
  Country: None (occurrence: None)
  Receive Date: 20110302
  Receipt Date: 20100422
  Transmission Date: 20110831
  Serious: Yes (Hospitalization, Other)
  Sender: FDA-Public Use
  Company Number: US-PFIZER INC-2010034439

PATIENT
  Sex: Female
  Weight: 125 kg

DRUGS (4)
  1. DILANTIN-125 [Suspect]
     Indication: CONVULSION
     Dosage: 100 MG, 3X/DAY
     Route: 048
     Dates: start: 20081121, end: 20081216
  2. DILANTIN [Suspect]
     Indication: CONVULSION
     Dosage: 100 MG, UNK
  3. LABETALOL [Concomitant]
     Indication: HYPERTENSION
     Dosage: 300 MG, 3X/DAY
     Route: 048
  4. ACETYLSALICYLIC ACID [Concomitant]
     Dosage: 325 MG, 1X/DAY
     Route: 048

REACTIONS (1)
  - STEVENS-JOHNSON SYNDROME [None]
